FAERS Safety Report 26158703 (Version 1)
Quarter: 2025Q4

REPORT INFORMATION
  Report Type: Report from Study
  Country: IL (occurrence: IL)
  Receive Date: 20251215
  Receipt Date: 20251215
  Transmission Date: 20260118
  Serious: Yes (Hospitalization)
  Sender: MERCK KGAA
  Company Number: IL-Merck Healthcare KGaA-2025063093

PATIENT
  Age: 62 Year
  Sex: Female
  Weight: 47 kg

DRUGS (1)
  1. MAVENCLAD [Suspect]
     Active Substance: CLADRIBINE
     Indication: Multiple sclerosis

REACTIONS (2)
  - Dehydration [Recovered/Resolved]
  - Pyrexia [Recovered/Resolved]
